FAERS Safety Report 8367204-7 (Version None)
Quarter: 2012Q2

REPORT INFORMATION
  Report Type: 
  Country: None (occurrence: None)
  Receive Date: 20120517
  Receipt Date: 20120511
  Transmission Date: 20120825
  Serious: Yes (Other)
  Sender: FDA-Public Use
  Company Number: PHHY2012IT041038

PATIENT
  Sex: Male

DRUGS (7)
  1. IFOSFAMIDE [Concomitant]
     Indication: EWING'S SARCOMA
  2. DOXORUBICIN HCL [Concomitant]
     Indication: EWING'S SARCOMA
  3. VINCRISTINE [Interacting]
     Indication: EWING'S SARCOMA
     Dosage: 1.5 MG/M2, UNK
  4. METHOTREXATE [Suspect]
     Indication: BONE SARCOMA
     Dosage: 12 G/M^2 FOR 4 HOURS
  5. CISPLATIN [Concomitant]
     Indication: BONE SARCOMA
  6. ETOPOSIDE [Interacting]
     Indication: EWING'S SARCOMA
     Dosage: 150 MG/M2, UNK
  7. CYCLOPHOSPHAMIDE [Concomitant]
     Indication: EWING'S SARCOMA

REACTIONS (10)
  - VOMITING [None]
  - TACHYCARDIA [None]
  - URTICARIA [None]
  - ANAPHYLACTIC REACTION [None]
  - AGITATION [None]
  - NAUSEA [None]
  - BLOOD IMMUNOGLOBULIN E INCREASED [None]
  - DRUG INTERACTION [None]
  - OXYGEN SATURATION DECREASED [None]
  - ANGIOEDEMA [None]
